FAERS Safety Report 6519366-1 (Version None)
Quarter: 2009Q4

REPORT INFORMATION
  Report Type: 
  Country: None (occurrence: None)
  Receive Date: 20091228
  Receipt Date: 20091218
  Transmission Date: 20100525
  Serious: Yes (Other)
  Sender: FDA-Public Use
  Company Number: GXKR2009US13671

PATIENT
  Age: 23 Year
  Sex: Male

DRUGS (2)
  1. TESTOSTERONE (NGX) [Suspect]
     Indication: TRANSGENDER HORMONAL THERAPY
     Dosage: EVERY WEEK
     Route: 030
  2. TESTOSTERONE (NGX) [Suspect]
     Dosage: DOSE DECREASED TO 50%
     Route: 030

REACTIONS (4)
  - BLINDNESS TRANSIENT [None]
  - HEADACHE [None]
  - INTRACRANIAL PRESSURE INCREASED [None]
  - PAPILLOEDEMA [None]
